FAERS Safety Report 5777442-5 (Version None)
Quarter: 2008Q2

REPORT INFORMATION
  Report Type: 
  Country: None (occurrence: None)
  Receive Date: 20080601
  Receipt Date: 20080303
  Transmission Date: 20081010
  Serious: No
  Sender: FDA-Public Use
  Company Number: 2005PV001558

PATIENT
  Age: 42 Year
  Sex: Female
  Weight: 112.5 kg

DRUGS (16)
  1. EXENATIDE(EXENATIDE) PEN,DISPOSABLE [Suspect]
     Indication: TYPE 2 DIABETES MELLITUS
     Dosage: 5 UG, 2/D, SUBCUTANEOUS ; 10 UG, 2/D, SUBCUTANEOUS ; 10 UG, 2/D, SUBCUTANEOUS
     Route: 058
     Dates: start: 20050814, end: 20050912
  2. EXENATIDE(EXENATIDE) PEN,DISPOSABLE [Suspect]
     Indication: TYPE 2 DIABETES MELLITUS
     Dosage: 5 UG, 2/D, SUBCUTANEOUS ; 10 UG, 2/D, SUBCUTANEOUS ; 10 UG, 2/D, SUBCUTANEOUS
     Route: 058
     Dates: start: 20050913
  3. EXENATIDE(EXENATIDE) PEN,DISPOSABLE [Suspect]
     Indication: TYPE 2 DIABETES MELLITUS
     Dosage: 5 UG, 2/D, SUBCUTANEOUS ; 10 UG, 2/D, SUBCUTANEOUS ; 10 UG, 2/D, SUBCUTANEOUS
     Route: 058
     Dates: start: 20050913
  4. EXENATIDE(EXENATIDE) PEN,DISPOSABLE [Suspect]
  5. EXENATIDE(EXENATIDE) PEN,DISPOSABLE [Suspect]
  6. GLUCOPHAGE [Concomitant]
  7. ACTOS [Concomitant]
  8. GLIPIZIDE [Concomitant]
  9. METFORMIN HCL [Concomitant]
  10. COZAAR [Concomitant]
  11. ACIPHEX [Concomitant]
  12. ALBUTEROL [Concomitant]
  13. TYLENOL [Concomitant]
  14. GAVISCON [Concomitant]
  15. NEXIUM [Concomitant]
  16. GLUCOTROL XL [Concomitant]

REACTIONS (13)
  - ABDOMINAL DISTENSION [None]
  - BLOOD GLUCOSE DECREASED [None]
  - BLOOD GLUCOSE INCREASED [None]
  - BRONCHITIS [None]
  - DECREASED APPETITE [None]
  - EARLY SATIETY [None]
  - GASTROOESOPHAGEAL REFLUX DISEASE [None]
  - HAEMATEMESIS [None]
  - INJECTION SITE HAEMORRHAGE [None]
  - NAUSEA [None]
  - PYREXIA [None]
  - VOMITING [None]
  - WEIGHT DECREASED [None]
